FAERS Safety Report 11700102 (Version 1)
Quarter: 2015Q4

REPORT INFORMATION
  Report Type: Spontaneous
  Country: US (occurrence: None)
  Receive Date: 20151104
  Receipt Date: 20151104
  Transmission Date: 20160304
  Serious: Yes (Hospitalization)
  Sender: FDA-Public Use
  Company Number: None

PATIENT
  Age: 61 Year
  Sex: Female
  Weight: 63.5 kg

DRUGS (13)
  1. PANTOPRAZOLE SODIUM 40 MG TEVA USA [Suspect]
     Active Substance: PANTOPRAZOLE SODIUM
     Indication: POSTOPERATIVE CARE
     Route: 048
     Dates: start: 20151009, end: 20151013
  2. TYLENOL [Concomitant]
     Active Substance: ACETAMINOPHEN
  3. VITAMIN C [Concomitant]
     Active Substance: ASCORBIC ACID
  4. CORAL CALCIUM [Concomitant]
  5. LIPITOR [Concomitant]
     Active Substance: ATORVASTATIN CALCIUM
  6. ASPIRIN. [Concomitant]
     Active Substance: ASPIRIN
  7. PANTOPRAZOLE SODIUM 40 MG TEVA USA [Suspect]
     Active Substance: PANTOPRAZOLE SODIUM
     Indication: VASCULAR GRAFT
     Route: 048
     Dates: start: 20151009, end: 20151013
  8. VIT. B 6 [Concomitant]
  9. VITAMIN B12 [Concomitant]
     Active Substance: CYANOCOBALAMIN
  10. AMIODARONE [Concomitant]
     Active Substance: AMIODARONE
  11. ESTRADIOL. [Concomitant]
     Active Substance: ESTRADIOL
  12. LATANOPROST EYEDROPS [Concomitant]
  13. VITAMIN D 3 [Concomitant]

REACTIONS (2)
  - Eructation [None]
  - Flatulence [None]

NARRATIVE: CASE EVENT DATE: 20151013
